FAERS Safety Report 8894880 (Version 1)
Quarter: 2012Q4

REPORT INFORMATION
  Report Type: 
  Country: CA (occurrence: CA)
  Receive Date: 20121107
  Receipt Date: 20121107
  Transmission Date: 20130627
  Serious: Yes (Other)
  Sender: FDA-Public Use
  Company Number: PHHO2005CA12991

PATIENT
  Sex: Female

DRUGS (11)
  1. SANDOSTATIN LAR (PATIENT BASIS) [Suspect]
     Indication: CARCINOID TUMOUR
     Dosage: 20 mg, every 4 weeks
     Dates: start: 20040520
  2. VITAMIN B12 [Concomitant]
  3. CALCIUM [Concomitant]
  4. FLOVENT [Concomitant]
  5. FOLIC ACID [Concomitant]
  6. SEREVENT [Concomitant]
  7. PAROXETINE [Concomitant]
  8. SIMVASTATIN [Concomitant]
  9. SPIRIVA [Concomitant]
  10. VENTOLIN [Concomitant]
  11. AVELOX [Concomitant]

REACTIONS (14)
  - Lung infection [Unknown]
  - Umbilical hernia [Unknown]
  - Dyspnoea [Not Recovered/Not Resolved]
  - Respiratory rate increased [Unknown]
  - Diarrhoea [Unknown]
  - Abdominal distension [Unknown]
  - Mucous stools [Recovered/Resolved]
  - Faeces discoloured [Recovered/Resolved]
  - Polydipsia [Unknown]
  - Nasopharyngitis [Unknown]
  - Muscle spasms [Unknown]
  - Wheezing [Not Recovered/Not Resolved]
  - Abdominal pain [Unknown]
  - Dizziness [Unknown]
